FAERS Safety Report 12127069 (Version 1)
Quarter: 2016Q1

REPORT INFORMATION
  Report Type: Report from Study
  Country: JP (occurrence: JP)
  Receive Date: 20160226
  Receipt Date: 20160226
  Transmission Date: 20160526
  Serious: Yes (Hospitalization)
  Sender: FDA-Public Use
  Company Number: JP-009507513-1602JPN011215

PATIENT
  Age: 62 Year
  Sex: Male
  Weight: 65 kg

DRUGS (6)
  1. PRIMOBOLAN TABLETS [Concomitant]
     Dosage: 15 MG, QD
     Route: 048
     Dates: start: 20140905
  2. LOXOPROFEN [Concomitant]
     Active Substance: LOXOPROFEN
     Indication: IMMUNE THROMBOCYTOPENIC PURPURA
     Dosage: 60 MG, QD
     Route: 048
     Dates: start: 20140906
  3. SIMEPREVIR [Suspect]
     Active Substance: SIMEPREVIR
     Indication: CHRONIC HEPATITIS C
     Dosage: 100 MG, QD
     Route: 048
     Dates: start: 20140905, end: 20141024
  4. REBAMIPIDE [Concomitant]
     Active Substance: REBAMIPIDE
     Indication: PROPHYLAXIS
     Dosage: 100 MG, QD
     Route: 048
     Dates: start: 20140906
  5. PEGINTRON [Suspect]
     Active Substance: PEGINTERFERON ALFA-2B
     Indication: CHRONIC HEPATITIS C
     Dosage: 1 MICROGRAM PER KILOGRAM, QW
     Route: 058
     Dates: start: 20140905, end: 20141024
  6. RIBAVIRIN. [Suspect]
     Active Substance: RIBAVIRIN
     Indication: CHRONIC HEPATITIS C
     Dosage: 800 MG, QD
     Route: 048
     Dates: start: 20140905, end: 20141024

REACTIONS (6)
  - Haemoglobin decreased [Recovered/Resolved]
  - Depressive symptom [Recovered/Resolved]
  - Eczema [Recovered/Resolved]
  - Blood bilirubin increased [Recovered/Resolved]
  - Pyrexia [Recovered/Resolved]
  - Pruritus [Recovered/Resolved]

NARRATIVE: CASE EVENT DATE: 20140906
